FAERS Safety Report 16689978 (Version 2)
Quarter: 2019Q3

REPORT INFORMATION
  Report Type: Report from Study
  Country: CA (occurrence: CA)
  Receive Date: 20190809
  Receipt Date: 20190813
  Transmission Date: 20191004
  Serious: Yes (Other)
  Sender: FDA-Public Use
  Company Number: CA-GILEAD-2019-0422810

PATIENT
  Sex: Female

DRUGS (2)
  1. IBAVYR [Suspect]
     Active Substance: RIBAVIRIN
     Indication: PRODUCT USED FOR UNKNOWN INDICATION
     Route: 065
     Dates: start: 20170208
  2. SOFOSBUVIR W/VELPATASVIR [Suspect]
     Active Substance: SOFOSBUVIR\VELPATASVIR
     Indication: CHRONIC HEPATITIS C
     Dosage: UNK
     Route: 065
     Dates: start: 20170208

REACTIONS (8)
  - Hepatitis C [Unknown]
  - Drug ineffective [Unknown]
  - Haemorrhage [Unknown]
  - Gastric infection [Unknown]
  - Blood iron decreased [Unknown]
  - Pruritus [Unknown]
  - Seborrhoea [Unknown]
  - Peripheral swelling [Unknown]
